FAERS Safety Report 25330575 (Version 1)
Quarter: 2025Q2

REPORT INFORMATION
  Report Type: Spontaneous
  Country: US (occurrence: None)
  Receive Date: 20250518
  Receipt Date: 20250518
  Transmission Date: 20250717
  Serious: Yes (Other)
  Sender: FDA-CTU
  Company Number: None

PATIENT
  Age: 68 Year
  Sex: Female
  Weight: 96.75 kg

DRUGS (1)
  1. SEMAGLUTIDE [Suspect]
     Active Substance: SEMAGLUTIDE
     Indication: Weight decreased
     Route: 058
     Dates: start: 20250312, end: 20250511

REACTIONS (9)
  - Nausea [None]
  - Abdominal pain upper [None]
  - Feeling abnormal [None]
  - Pain [None]
  - Dyspnoea [None]
  - Constipation [None]
  - Insomnia [None]
  - Fatigue [None]
  - Vomiting [None]

NARRATIVE: CASE EVENT DATE: 20250515
